FAERS Safety Report 18474086 (Version 1)
Quarter: 2020Q4

REPORT INFORMATION
  Report Type: Spontaneous
  Country: US (occurrence: US)
  Receive Date: 20201106
  Receipt Date: 20201106
  Transmission Date: 20210114
  Serious: No
  Sender: FDA-Public Use
  Company Number: US-PFIZER INC-2019544150

PATIENT
  Age: 81 Year
  Sex: Female

DRUGS (2)
  1. LYRICA [Suspect]
     Active Substance: PREGABALIN
     Indication: PAIN
     Dosage: 225 MG, DAILY (75 MG 1 CAPSULE AM + 2 CAPSULES PM AS DIRECTED FOR 90 DAYS)
     Route: 048
     Dates: start: 20191213
  2. LYRICA [Suspect]
     Active Substance: PREGABALIN
     Dosage: 225 MG, DAILY (75 MG 1 CAPSULE AM + 2 CAPSULES PM AS DIRECTED FOR 90 DAYS)
     Route: 048
     Dates: start: 20200807

REACTIONS (1)
  - Hypoacusis [Unknown]
